FAERS Safety Report 4976579-8 (Version None)
Quarter: 2006Q2

REPORT INFORMATION
  Report Type: 
  Country: None (occurrence: None)
  Receive Date: 20060419
  Receipt Date: 20060413
  Transmission Date: 20061013
  Serious: Yes (Other)
  Sender: FDA-Public Use
  Company Number: US-MERCK-0604USA02427

PATIENT
  Sex: Male

DRUGS (1)
  1. VIOXX [Suspect]
     Indication: ARTHRALGIA
     Route: 048
     Dates: start: 20030601

REACTIONS (4)
  - ANGINA UNSTABLE [None]
  - CARDIAC STRESS TEST ABNORMAL [None]
  - CORONARY ANGIOPLASTY [None]
  - ELECTROCARDIOGRAM CHANGE [None]
